FAERS Safety Report 15013468 (Version 1)
Quarter: 2018Q2

REPORT INFORMATION
  Report Type: Spontaneous
  Country: US (occurrence: US)
  Receive Date: 20180614
  Receipt Date: 20180614
  Transmission Date: 20180711
  Serious: No
  Sender: FDA-Public Use
  Company Number: US-BAUSCH-BL-2017-034156

PATIENT
  Age: 48 Year
  Sex: Male

DRUGS (4)
  1. RELISTOR [Suspect]
     Active Substance: METHYLNALTREXONE BROMIDE
     Route: 058
     Dates: start: 201606
  2. RELISTOR [Suspect]
     Active Substance: METHYLNALTREXONE BROMIDE
     Route: 058
     Dates: start: 201606
  3. RELISTOR [Suspect]
     Active Substance: METHYLNALTREXONE BROMIDE
     Indication: CONSTIPATION
     Dosage: DAILY
     Route: 058
     Dates: start: 201606
  4. DURAGESIC [Concomitant]
     Active Substance: FENTANYL
     Indication: PRODUCT USED FOR UNKNOWN INDICATION
     Dosage: 75
     Route: 061

REACTIONS (6)
  - Tremor [Not Recovered/Not Resolved]
  - Hyperhidrosis [Not Recovered/Not Resolved]
  - Abdominal pain [Not Recovered/Not Resolved]
  - Drug interaction [Not Recovered/Not Resolved]
  - Chills [Not Recovered/Not Resolved]
  - Treatment noncompliance [Unknown]
